FAERS Safety Report 7399040-2 (Version None)
Quarter: 2011Q2

REPORT INFORMATION
  Report Type: 
  Country: None (occurrence: None)
  Receive Date: 20110407
  Receipt Date: 20110330
  Transmission Date: 20111010
  Serious: Yes (Other)
  Sender: FDA-Public Use
  Company Number: US-ABBOTT-11P-163-0715830-00

PATIENT
  Sex: Male

DRUGS (2)
  1. NIASPAN [Suspect]
     Dates: start: 20080101
  2. NIASPAN [Suspect]
     Indication: PRODUCT USED FOR UNKNOWN INDICATION
     Dates: start: 20040101, end: 20080101

REACTIONS (3)
  - CEREBROVASCULAR ACCIDENT [None]
  - FLUSHING [None]
  - DRUG DOSE OMISSION [None]
